FAERS Safety Report 11250441 (Version 1)
Quarter: 2015Q3

REPORT INFORMATION
  Report Type: Spontaneous
  Country: US (occurrence: US)
  Receive Date: 20150708
  Receipt Date: 20150708
  Transmission Date: 20151125
  Serious: No
  Sender: FDA-Public Use
  Company Number: US-ELI_LILLY_AND_COMPANY-US200906005516

PATIENT
  Age: 57 Year
  Sex: Female

DRUGS (2)
  1. GLUCAGON. [Suspect]
     Active Substance: GLUCAGON
     Indication: BLOOD GLUCOSE DECREASED
  2. NOVOLOG [Concomitant]
     Active Substance: INSULIN ASPART
     Indication: TYPE 2 DIABETES MELLITUS

REACTIONS (1)
  - Injection site pain [Unknown]

NARRATIVE: CASE EVENT DATE: 20090622
